FAERS Safety Report 23587758 (Version 1)
Quarter: 2024Q1

REPORT INFORMATION
  Report Type: Spontaneous
  Country: US (occurrence: US)
  Receive Date: 20240301
  Receipt Date: 20240301
  Transmission Date: 20240409
  Serious: No
  Sender: FDA-Public Use
  Company Number: US-SANOFI-01963002

PATIENT
  Age: 66 Year
  Sex: Male

DRUGS (1)
  1. TOUJEO MAX [Suspect]
     Active Substance: INSULIN GLARGINE
     Indication: Type 2 diabetes mellitus
     Dosage: 12 UNITS IN THE MORNING, 12 UNITS AT LUNCH, AND 24 UNITS AT BEDTIME, TID

REACTIONS (1)
  - Inappropriate schedule of product administration [Unknown]
